FAERS Safety Report 7241876-2 (Version None)
Quarter: 2011Q1

REPORT INFORMATION
  Report Type: 
  Country: None (occurrence: None)
  Receive Date: 20110124
  Receipt Date: 20110114
  Transmission Date: 20110831
  Serious: Yes (Other)
  Sender: FDA-Public Use
  Company Number: FR-BRISTOL-MYERS SQUIBB COMPANY-15310485

PATIENT
  Age: 40 Year
  Sex: Female

DRUGS (14)
  1. PRIMPERAN TAB [Concomitant]
     Dosage: 3DF/DAY
     Route: 048
     Dates: start: 20100618
  2. STILNOX [Suspect]
     Dates: start: 20100614
  3. LOVENOX [Concomitant]
     Dosage: 1DF=6000 UI
     Route: 058
     Dates: start: 20100602, end: 20100614
  4. INNOHEP [Concomitant]
     Dosage: 1DF=0.6ML
     Route: 058
     Dates: start: 20100615
  5. ZOPHREN [Suspect]
     Dosage: FORMULATION 4MG 2DF/DAY
  6. SPASFON [Concomitant]
     Dosage: 6DF/DAY
     Route: 048
     Dates: start: 20100614, end: 20100621
  7. AUGMENTIN '125' [Concomitant]
     Dosage: 3G/D 14-16JUN10 (2 DAYS) 2G/D 17-21JUN10 (4 DAYS)
     Route: 048
     Dates: start: 20100614, end: 20100621
  8. DEBRIDAT [Concomitant]
     Dosage: 2DF/DAY
     Route: 048
     Dates: start: 20100618
  9. LYSODREN [Suspect]
     Indication: ADRENOCORTICAL CARCINOMA
     Dosage: 4-17JUN10 6DF 13DAYS 18-23JUL10 4DF 35DAYS STOPPED ON 23JUL10
     Route: 048
     Dates: start: 20100604, end: 20100723
  10. PARACETAMOL [Suspect]
     Dosage: 4 GM/DAY
  11. ULTRA-LEVURE [Suspect]
     Dosage: 3DF/DAY
     Dates: start: 20100614
  12. HYDROCORTISONE [Suspect]
     Dates: start: 20100614
  13. EUPANTOL [Suspect]
     Dosage: EUPANTOL 40MG
     Dates: start: 20100614
  14. LEXOMIL [Suspect]
     Dosage: 1DF=0.5MG
     Route: 048
     Dates: start: 20100614

REACTIONS (8)
  - LIVER DISORDER [None]
  - BLOOD LACTATE DEHYDROGENASE INCREASED [None]
  - GASTROINTESTINAL DISORDER [None]
  - ASPARTATE AMINOTRANSFERASE INCREASED [None]
  - ALANINE AMINOTRANSFERASE INCREASED [None]
  - NEOPLASM MALIGNANT [None]
  - GAMMA-GLUTAMYLTRANSFERASE INCREASED [None]
  - BLOOD ALKALINE PHOSPHATASE INCREASED [None]
